FAERS Safety Report 5386003-1 (Version None)
Quarter: 2007Q3

REPORT INFORMATION
  Report Type: 
  Country: None (occurrence: None)
  Receive Date: 20070709
  Receipt Date: 20070625
  Transmission Date: 20080115
  Serious: Yes (Hospitalization, Other)
  Sender: FDA-Public Use
  Company Number: 02100-EUR-07-0078

PATIENT
  Age: 73 Year
  Sex: Male

DRUGS (11)
  1. CILOSTAZOL [Suspect]
     Indication: PERIPHERAL ARTERIAL OCCLUSIVE DISEASE
     Dosage: 200 MG, ORAL
     Route: 048
     Dates: start: 20070420, end: 20070430
  2. ASPIRIN [Suspect]
     Dosage: ORAL
     Route: 048
  3. CLOPIDOGREL [Suspect]
     Dosage: ORAL
     Route: 048
  4. SIMVASTATIN [Concomitant]
  5. MOLSIDOMINE [Concomitant]
  6. PREGABALINE [Concomitant]
  7. VERAPAMIL [Concomitant]
  8. TORSEMIDE [Concomitant]
  9. ATACAND HCT [Concomitant]
  10. ASPIRIN [Concomitant]
  11. CLOPIDOGREL [Concomitant]

REACTIONS (2)
  - DRUG INTERACTION [None]
  - GASTRIC ULCER HAEMORRHAGE [None]
